FAERS Safety Report 10095002 (Version 1)
Quarter: 2014Q2

REPORT INFORMATION
  Report Type: Spontaneous
  Country: US (occurrence: None)
  Receive Date: 20140418
  Receipt Date: 20140418
  Transmission Date: 20141212
  Serious: Yes (Hospitalization)
  Sender: FDA-Public Use
  Company Number: DL2014-0101

PATIENT
  Age: 23 Year
  Sex: Female

DRUGS (3)
  1. MIFEPRISTONE [Suspect]
     Indication: ABORTION INDUCED
     Route: 048
     Dates: start: 20130420
  2. MISOPROSTOL TABLETS, 200 MCG [Suspect]
     Route: 002
  3. AZITHROMYCIN [Concomitant]

REACTIONS (2)
  - Haemorrhage [None]
  - Uterine haemorrhage [None]
